FAERS Safety Report 12967936 (Version 2)
Quarter: 2016Q4

REPORT INFORMATION
  Report Type: Spontaneous
  Country: US (occurrence: US)
  Receive Date: 20161123
  Receipt Date: 20161201
  Transmission Date: 20170207
  Serious: No
  Sender: FDA-Public Use
  Company Number: US-PFIZER INC-2016544750

PATIENT
  Age: 86 Year
  Sex: Male

DRUGS (2)
  1. GLIPIZIDE XL [Suspect]
     Active Substance: GLIPIZIDE
     Dosage: 20 MG, 1X/DAY
  2. GLIPIZIDE XL [Suspect]
     Active Substance: GLIPIZIDE
     Dosage: 2.5 MG, UNK

REACTIONS (1)
  - Activated partial thromboplastin time prolonged [Unknown]
